FAERS Safety Report 23118215 (Version 2)
Quarter: 2024Q1

REPORT INFORMATION
  Report Type: Report from Study
  Country: US (occurrence: US)
  Receive Date: 20231027
  Receipt Date: 20240112
  Transmission Date: 20240409
  Serious: Yes (Other)
  Sender: FDA-Public Use
  Company Number: US-002147023-NVSC2023US228664

PATIENT
  Age: 62 Year
  Sex: Male

DRUGS (1)
  1. ENTRESTO [Suspect]
     Active Substance: SACUBITRIL\VALSARTAN
     Indication: Cardiac failure
     Dosage: 1 DOSAGE FORM, BID
     Route: 048
     Dates: start: 202310

REACTIONS (4)
  - Lymphoma [Recovered/Resolved]
  - Blood magnesium decreased [Unknown]
  - Heart rate increased [Recovered/Resolved]
  - Weight abnormal [Unknown]

NARRATIVE: CASE EVENT DATE: 20231001
